FAERS Safety Report 23639735 (Version 1)
Quarter: 2024Q1

REPORT INFORMATION
  Report Type: Report from Study
  Country: JP (occurrence: JP)
  Receive Date: 20240316
  Receipt Date: 20240316
  Transmission Date: 20240409
  Serious: Yes (Hospitalization)
  Sender: FDA-Public Use
  Company Number: JP-ORPHANEU-2019004755

PATIENT

DRUGS (25)
  1. CARBAGLU [Suspect]
     Active Substance: CARGLUMIC ACID
     Indication: Hyperammonaemia
     Dosage: 1000 MILLIGRAM
     Dates: start: 20170110
  2. CARBAGLU [Suspect]
     Active Substance: CARGLUMIC ACID
     Indication: Propionic acidaemia
     Dosage: 1200 MILLIGRAM DAILY
     Dates: start: 20171121
  3. CARBAGLU [Suspect]
     Active Substance: CARGLUMIC ACID
     Dosage: 1200-1000MG DAILY
     Dates: start: 20180111, end: 20180115
  4. CARBAGLU [Suspect]
     Active Substance: CARGLUMIC ACID
     Dosage: 500 MILLIGRAM, BID
     Dates: start: 20180116, end: 20180205
  5. CARBAGLU [Suspect]
     Active Substance: CARGLUMIC ACID
     Dosage: 600 MILLIGRAM (49.6 MG/KG), BID
     Dates: start: 20180206, end: 20180226
  6. CARBAGLU [Suspect]
     Active Substance: CARGLUMIC ACID
     Dosage: 500 MILLIGRAM (40.6 MG/KG), BID
     Dates: start: 20180227, end: 20180426
  7. CARBAGLU [Suspect]
     Active Substance: CARGLUMIC ACID
     Dosage: 1400 - 1600 MG DAILY
     Dates: start: 20180427, end: 20180508
  8. CARBAGLU [Suspect]
     Active Substance: CARGLUMIC ACID
     Dosage: 500 MILLIGRAM, BID
     Dates: start: 20180509, end: 20181120
  9. CARBAGLU [Suspect]
     Active Substance: CARGLUMIC ACID
     Dosage: 600 MILLIGRAM, BID
     Dates: start: 20181121
  10. SODIUM BENZOATE [Concomitant]
     Active Substance: SODIUM BENZOATE
     Indication: Propionic acidaemia
     Dosage: 10 GRAM DAILY
     Route: 048
  11. BIOTIN [Concomitant]
     Active Substance: BIOTIN
     Indication: Propionic acidaemia
     Dosage: 5 MILLIGRAM DAILY
     Route: 048
  12. ALINAMIN F [Concomitant]
     Active Substance: FURSULTIAMINE HYDROCHLORIDE
     Indication: Propionic acidaemia
     Dosage: 300 MG DAILY
     Route: 048
  13. ASCORBIC ACID [Concomitant]
     Active Substance: ASCORBIC ACID
     Indication: Propionic acidaemia
     Dosage: 6 GRAM DAILY
     Route: 048
  14. DEXTROSE [Concomitant]
     Active Substance: DEXTROSE\DEXTROSE MONOHYDRATE
     Indication: Propionic acidaemia
     Dosage: 10 GRAMS
     Route: 048
     Dates: end: 201805
  15. DEXTROSE [Concomitant]
     Active Substance: DEXTROSE\DEXTROSE MONOHYDRATE
     Dosage: 15 GRAM
     Route: 048
     Dates: start: 20180509
  16. LEVOCARNITINE HYDROCHLORIDE [Concomitant]
     Active Substance: LEVOCARNITINE HYDROCHLORIDE
     Indication: Propionic acidaemia
     Dosage: 40 MILLILITER
  17. ALUMINUM SILICATE [Concomitant]
     Active Substance: ALUMINUM SILICATE
     Indication: Disease complication
     Dosage: 2 GRAM
     Route: 048
  18. MIYA-BM [Concomitant]
     Active Substance: CLOSTRIDIUM BUTYRICUM SPORES STRAIN M-55
     Indication: Disease complication
     Dosage: 2 GRAM
     Route: 048
  19. Lopemin [Concomitant]
     Indication: Disease complication
     Dosage: 1 MILLIGRAM
     Route: 048
  20. GASTER [Concomitant]
     Active Substance: FAMOTIDINE
     Indication: Disease complication
     Dosage: 20 MILLIGRAM
     Route: 048
  21. CALCIUM LACTATE [Concomitant]
     Active Substance: CALCIUM LACTATE
     Indication: Disease complication
     Dosage: 2 GRAM
     Route: 048
  22. DIETARY SUPPLEMENT\UBIDECARENONE [Concomitant]
     Active Substance: DIETARY SUPPLEMENT\UBIDECARENONE
     Indication: Propionic acidaemia
     Dosage: 70 MILLIGRAM
     Route: 048
     Dates: end: 20181208
  23. DIETARY SUPPLEMENT\UBIDECARENONE [Concomitant]
     Active Substance: DIETARY SUPPLEMENT\UBIDECARENONE
     Dosage: 100 MILLIGRAM
     Route: 048
     Dates: start: 20191209
  24. HERBAL NOS [Concomitant]
     Active Substance: HERBALS
     Indication: Disease complication
     Dosage: 4 GRAM
     Route: 048
  25. Cefzon [Concomitant]
     Indication: Infection prophylaxis
     Dosage: 300 MG
     Route: 048
     Dates: start: 20180129, end: 20180131

REACTIONS (10)
  - Upper respiratory tract inflammation [Recovered/Resolved]
  - Upper respiratory tract inflammation [Unknown]
  - Vomiting [Recovered/Resolved]
  - Vomiting [Recovered/Resolved]
  - Vomiting [Recovered/Resolved]
  - Hyperammonaemia [Recovered/Resolved]
  - Hyperammonaemia [Recovered/Resolved]
  - Hyperammonaemia [Recovered/Resolved]
  - Hyperammonaemia [Recovered/Resolved]
  - Hyperammonaemia [Unknown]

NARRATIVE: CASE EVENT DATE: 20180423
